FAERS Safety Report 5840239-1 (Version None)
Quarter: 2008Q3

REPORT INFORMATION
  Report Type: 
  Country: None (occurrence: None)
  Receive Date: 20080807
  Receipt Date: 20080807
  Transmission Date: 20090109
  Serious: No
  Sender: FDA-Public Use
  Company Number: None

PATIENT
  Sex: Male
  Weight: 90.1 kg

DRUGS (1)
  1. DAUNORUBICIN HCL [Suspect]
     Dosage: 279 MG
     Dates: end: 20050511

REACTIONS (1)
  - EJECTION FRACTION DECREASED [None]
